FAERS Safety Report 16697655 (Version 1)
Quarter: 2019Q3

REPORT INFORMATION
  Report Type: Report from Study
  Country: DE (occurrence: DE)
  Receive Date: 20190813
  Receipt Date: 20190813
  Transmission Date: 20191004
  Serious: Yes (Other)
  Sender: FDA-Public Use
  Company Number: PHHY2015DE096011

PATIENT
  Age: 41 Year
  Sex: Female

DRUGS (3)
  1. GILENYA [Suspect]
     Active Substance: FINGOLIMOD HYDROCHLORIDE
     Dosage: UNK, QD
     Route: 048
     Dates: start: 20170110, end: 20170511
  2. GILENYA [Suspect]
     Active Substance: FINGOLIMOD HYDROCHLORIDE
     Indication: MULTIPLE SCLEROSIS
     Dosage: UNK, QD
     Route: 048
     Dates: start: 20131028
  3. GILENYA [Suspect]
     Active Substance: FINGOLIMOD HYDROCHLORIDE
     Dosage: UNK, QD
     Route: 048
     Dates: start: 20170512

REACTIONS (11)
  - Myelopathy [Unknown]
  - Gamma-glutamyltransferase increased [Unknown]
  - Restless legs syndrome [Unknown]
  - Leukopenia [Recovered/Resolved]
  - Aspartate aminotransferase increased [Unknown]
  - Lymphopenia [Recovered/Resolved]
  - Lymphopenia [Unknown]
  - Alanine aminotransferase increased [Unknown]
  - Ligament injury [Unknown]
  - Vitamin D deficiency [Unknown]
  - Osteitis [Unknown]

NARRATIVE: CASE EVENT DATE: 20150609
